FAERS Safety Report 8511647-5 (Version None)
Quarter: 2012Q3

REPORT INFORMATION
  Report Type: 
  Country: None (occurrence: None)
  Receive Date: 20120716
  Receipt Date: 20120712
  Transmission Date: 20120928
  Serious: Yes (Death, Other)
  Sender: FDA-Public Use
  Company Number: FR-PFIZER INC-2012167298

PATIENT
  Age: 98 Year
  Sex: Female

DRUGS (2)
  1. EFFEXOR [Suspect]
     Dosage: 37.5 MG, DAILY
     Route: 048
     Dates: start: 20120504
  2. PREVISCAN [Suspect]
     Indication: DEEP VEIN THROMBOSIS
     Dosage: 20 MG, DAILY
     Route: 048
     Dates: start: 20120510

REACTIONS (4)
  - DEEP VEIN THROMBOSIS [None]
  - SHOCK HAEMORRHAGIC [None]
  - ISCHAEMIC STROKE [None]
  - GASTROINTESTINAL HAEMORRHAGE [None]
